FAERS Safety Report 14305690 (Version 1)
Quarter: 2017Q4

REPORT INFORMATION
  Report Type: Spontaneous
  Country: IT (occurrence: IT)
  Receive Date: 20171219
  Receipt Date: 20171219
  Transmission Date: 20180321
  Serious: Yes (Hospitalization)
  Sender: FDA-Public Use
  Company Number: PHHY2017IT188524

PATIENT
  Age: 55 Year
  Sex: Female

DRUGS (3)
  1. TORA-DOL [Suspect]
     Active Substance: KETOROLAC TROMETHAMINE
     Indication: RENAL COLIC
     Dosage: 10 GTT, TOTAL
     Route: 048
  2. FLEXEN (KETOPROFEN) [Suspect]
     Active Substance: KETOPROFEN
     Indication: RENAL COLIC
     Dosage: 100 MG, TOTAL
     Route: 041
  3. RANITIDINE. [Suspect]
     Active Substance: RANITIDINE
     Indication: RENAL COLIC
     Dosage: 50 MG, TOTAL
     Route: 041

REACTIONS (1)
  - Cell death [Recovering/Resolving]

NARRATIVE: CASE EVENT DATE: 20171128
